FAERS Safety Report 12614900 (Version 2)
Quarter: 2016Q3

REPORT INFORMATION
  Report Type: Spontaneous
  Country: GR (occurrence: GR)
  Receive Date: 20160802
  Receipt Date: 20160804
  Transmission Date: 20161109
  Serious: Yes (Hospitalization)
  Sender: FDA-Public Use
  Company Number: GR-BIOGEN-2016BI00272860

PATIENT
  Sex: Female

DRUGS (1)
  1. TECFIDERA [Suspect]
     Active Substance: DIMETHYL FUMARATE
     Indication: MULTIPLE SCLEROSIS
     Route: 048
     Dates: start: 2016

REACTIONS (3)
  - Dysphagia [Not Recovered/Not Resolved]
  - Conversion disorder [Unknown]
  - Hemiparesis [Unknown]

NARRATIVE: CASE EVENT DATE: 20160729
